FAERS Safety Report 13491274 (Version 2)
Quarter: 2017Q2

REPORT INFORMATION
  Report Type: Spontaneous
  Country: US (occurrence: US)
  Receive Date: 20170427
  Receipt Date: 20170526
  Transmission Date: 20170830
  Serious: Yes (Death)
  Sender: FDA-Public Use
  Company Number: US-ASTELLAS-2017US016017

PATIENT
  Age: 60 Year
  Sex: Female

DRUGS (65)
  1. LOVASTATIN. [Concomitant]
     Active Substance: LOVASTATIN
     Indication: PRODUCT USED FOR UNKNOWN INDICATION
     Route: 065
     Dates: end: 20170412
  2. CHLORHEXIDINE [Concomitant]
     Active Substance: CHLORHEXIDINE
     Indication: PRODUCT USED FOR UNKNOWN INDICATION
     Dosage: 15 ML SWISH, TWICE DAILY
     Route: 048
  3. LABETALOL [Concomitant]
     Active Substance: LABETALOL\LABETALOL HYDROCHLORIDE
     Indication: HYPERTENSION
     Dosage: 20 MG/ 4 ML, PUSH ONCE
     Route: 042
  4. LACTATED RINGERS [Concomitant]
     Active Substance: CALCIUM CHLORIDE\POTASSIUM CHLORIDE\SODIUM CHLORIDE\SODIUM LACTATE
     Indication: PRODUCT USED FOR UNKNOWN INDICATION
     Dosage: 1000 ML (100 ML/ HOUR), ONCE DAILY
     Route: 042
  5. METHYLPREDNISOLONE SODIUM SUCCINATE. [Concomitant]
     Active Substance: METHYLPREDNISOLONE SODIUM SUCCINATE
     Indication: PRODUCT USED FOR UNKNOWN INDICATION
     Dosage: 125 MG / 2 ML, EVERY 6 HOURS
     Route: 042
  6. METHYLPREDNISOLONE SODIUM SUCCINATE. [Concomitant]
     Active Substance: METHYLPREDNISOLONE SODIUM SUCCINATE
     Dosage: 60 MG / 1.5 ML, EVERY 6 HOURS
     Route: 042
  7. SENNA                              /00142201/ [Concomitant]
     Active Substance: SENNA LEAF
     Dosage: 8.6 MG, TWICE DAILY AS NEEDED
     Route: 048
  8. ALBUTEROL W/IPRATROPIUM [Concomitant]
     Active Substance: ALBUTEROL\IPRATROPIUM
     Indication: PRODUCT USED FOR UNKNOWN INDICATION
     Dosage: 3 ML, EVERY 4 HOURS
     Route: 055
  9. ACETAMINOPHEN. [Concomitant]
     Active Substance: ACETAMINOPHEN
     Indication: PYREXIA
     Dosage: 650 MG, EVERY 4 HOURS
     Route: 048
  10. FENTANYL. [Concomitant]
     Active Substance: FENTANYL
     Indication: PAIN
     Dosage: 100 MCG / 2 ML EVERY 15 MINUTES, AS NEEDED
     Route: 042
  11. LORAZEPAM. [Concomitant]
     Active Substance: LORAZEPAM
     Indication: ANXIETY
     Dosage: 2 MG/ 1 ML, PUSH EVERY 15 MINUTES AS NEEDED
     Route: 042
  12. METOPROLOL. [Concomitant]
     Active Substance: METOPROLOL
     Indication: PRODUCT USED FOR UNKNOWN INDICATION
     Dosage: 5 MG/ 5 ML, EVERY 6 HOURS
     Route: 042
  13. MIDAZOLAM [Concomitant]
     Active Substance: MIDAZOLAM HYDROCHLORIDE
     Dosage: 4 MG / 4 ML PUSH EVERY 1 HOUR, AS NEEDED
     Route: 042
  14. NICARDIPINE [Concomitant]
     Active Substance: NICARDIPINE
     Indication: PRODUCT USED FOR UNKNOWN INDICATION
     Dosage: UNK UNK, UNKNOWN FREQ.
     Route: 042
  15. POLYETHYLENE GLYCOL 3350 AND ELECTROLYTES [Concomitant]
     Active Substance: POLYETHYLENE GLYCOL 3350\POLYETHYLENE GLYCOL 3350\POTASSIUM CHLORIDE\SODIUM BICARBONATE\SODIUM CHLORIDE\SODIUM SULFATE ANHYDROUS\POTASSIUM CHLORIDE\SODIUM BICARBONATE\SODIUM CHLORIDE\SODIUM SULFATE ANHYDROUS
     Indication: CONSTIPATION
     Dosage: 17 G, TWICE DAILY AS NEEDED
     Route: 048
  16. POTASSIUM CHLORIDE. [Concomitant]
     Active Substance: POTASSIUM CHLORIDE
     Indication: PRODUCT USED FOR UNKNOWN INDICATION
     Dosage: 20 MEQ/ 15 ML NG, EVERY 4 HOUR
     Route: 065
  17. SODIUM CHLORIDE. [Concomitant]
     Active Substance: SODIUM CHLORIDE
     Indication: PRODUCT USED FOR UNKNOWN INDICATION
     Route: 042
  18. VANCOMYCIN [Concomitant]
     Active Substance: VANCOMYCIN
     Dosage: 1750 MG + 500 ML NS, ONCE (356.67 ML/HOUR)
     Route: 042
  19. ALBUTEROL W/IPRATROPIUM [Concomitant]
     Active Substance: ALBUTEROL\IPRATROPIUM
     Route: 055
  20. ALBUTEROL W/IPRATROPIUM [Concomitant]
     Active Substance: ALBUTEROL\IPRATROPIUM
     Route: 055
  21. ALBUTEROL                          /00139501/ [Concomitant]
     Active Substance: ALBUTEROL
     Dosage: 2.5 MG/ 3 ML EVERY 4 HOURS
     Route: 055
  22. BISACODYL EG [Concomitant]
     Dosage: 10 MG, TWICE DAILY AS NEEDED
     Route: 065
  23. DEXMEDETOMIDINE. [Concomitant]
     Active Substance: DEXMEDETOMIDINE
     Indication: PRODUCT USED FOR UNKNOWN INDICATION
     Dosage: 400 ?G+ 100 ML NS, UNKNOWN FREQ.
     Route: 042
  24. FENTANYL. [Concomitant]
     Active Substance: FENTANYL
     Dosage: 50 MCG / 1 ML EVERY 15 MINUTES, AS NEEDED
     Route: 042
  25. FENTANYL. [Concomitant]
     Active Substance: FENTANYL
     Dosage: 50 MCG / 1 ML EVERY 1 HOUR, AS NEEDED
     Route: 042
  26. FLUCONAZOLE. [Concomitant]
     Active Substance: FLUCONAZOLE
     Indication: PRODUCT USED FOR UNKNOWN INDICATION
     Dosage: 400 MG IN 200 ML NS, EVERY 24 HOURS (100 ML/HOUR)
     Route: 042
  27. LABETALOL [Concomitant]
     Active Substance: LABETALOL\LABETALOL HYDROCHLORIDE
     Dosage: 20 MG/ 4 ML, PUSH EVERY 1 HOUR AS NEEDED
     Route: 042
  28. NOREPINEPHRINE. [Concomitant]
     Active Substance: NOREPINEPHRINE
     Indication: PRODUCT USED FOR UNKNOWN INDICATION
     Dosage: UNK UNK, UNKNOWN FREQ.
     Route: 042
  29. SENNA                              /00142201/ [Concomitant]
     Active Substance: SENNA LEAF
     Indication: CONSTIPATION
     Dosage: 17.2 MG, TWICE DAILY AS NEEDED
     Route: 048
  30. SUCCINYLCHOLINE [Concomitant]
     Active Substance: SUCCINYLCHOLINE
     Indication: PRODUCT USED FOR UNKNOWN INDICATION
     Dosage: 150 MG / 7.5 ML PUSH ONCE
     Route: 042
  31. MYCAMINE [Suspect]
     Active Substance: MICAFUNGIN SODIUM
     Indication: PNEUMONIA
     Dosage: 100 MG IN 100 ML OF NORMAL SALINE (NS) OVER 1 HOUR EVERY 24 HOURS
     Route: 042
     Dates: start: 20170415, end: 20170419
  32. LOSARTAN. [Concomitant]
     Active Substance: LOSARTAN
     Indication: PRODUCT USED FOR UNKNOWN INDICATION
     Route: 048
     Dates: end: 20170412
  33. ALBUTEROL                          /00139501/ [Concomitant]
     Active Substance: ALBUTEROL
     Indication: WHEEZING
     Dosage: 2.5 MG/ 3 ML, EVERY 2 HOURS
     Route: 055
  34. FENTANYL. [Concomitant]
     Active Substance: FENTANYL
     Dosage: 25 MCG / 0.5 ML EVERY 20 MINUTES, AS NEEDED
     Route: 042
  35. FUROSEMIDE. [Concomitant]
     Active Substance: FUROSEMIDE
     Indication: PRODUCT USED FOR UNKNOWN INDICATION
     Dosage: 20 MG/ 2 ML, PUSH ONCE
     Route: 042
  36. HEPARIN [Concomitant]
     Active Substance: HEPARIN SODIUM
     Indication: PRODUCT USED FOR UNKNOWN INDICATION
     Dosage: 1 ML, EVERY 12 HOURS
     Route: 058
  37. MIDAZOLAM [Concomitant]
     Active Substance: MIDAZOLAM HYDROCHLORIDE
     Dosage: 2 MG / 2 ML PUSH EVERY 1 HOUR, AS NEEDED
     Route: 042
  38. PROPOFOL. [Concomitant]
     Active Substance: PROPOFOL
     Indication: PRODUCT USED FOR UNKNOWN INDICATION
     Dosage: 1,000 MG 100 ML, UNKNOWN FREQ.
     Route: 042
  39. VECURONIUM [Concomitant]
     Active Substance: VECURONIUM BROMIDE
     Indication: PRODUCT USED FOR UNKNOWN INDICATION
     Dosage: 10 MG, PUSH ONCE
     Route: 042
  40. VENTOLIN [Concomitant]
     Active Substance: ALBUTEROL SULFATE
     Indication: PRODUCT USED FOR UNKNOWN INDICATION
     Dosage: UNK UNK, AS NEEDED
     Route: 065
     Dates: end: 20170412
  41. ADVAIR HFA [Concomitant]
     Active Substance: FLUTICASONE PROPIONATE\SALMETEROL XINAFOATE
     Indication: PRODUCT USED FOR UNKNOWN INDICATION
     Dosage: 500/50 UNIT NOT REPORTED, EVERY 12 HOURS
     Route: 065
     Dates: end: 20170412
  42. MENTHOL W/ZINC OXIDE [Concomitant]
     Indication: SKIN IRRITATION
     Dosage: 1 APPLICATION, THRICE DAILY AS NEEDED
     Route: 061
  43. METHYLPREDNISOLONE SODIUM SUCCINATE. [Concomitant]
     Active Substance: METHYLPREDNISOLONE SODIUM SUCCINATE
     Dosage: 60 MG / 1.5 ML, EVERY 8 HOURS
     Route: 042
  44. PANTOPRAZOLE [Concomitant]
     Active Substance: PANTOPRAZOLE
     Indication: PRODUCT USED FOR UNKNOWN INDICATION
     Route: 042
  45. PIPERACILLIN AND TAZOBACTAM [Concomitant]
     Active Substance: PIPERACILLIN SODIUM\TAZOBACTAM SODIUM
     Indication: PRODUCT USED FOR UNKNOWN INDICATION
     Dosage: 3.375 GM + 100 ML NS EVERY 8 HOURS, 25 ML/ HOUR
     Route: 042
  46. SODIUM BICARBONATE. [Concomitant]
     Active Substance: SODIUM BICARBONATE
     Indication: PRODUCT USED FOR UNKNOWN INDICATION
     Dosage: 50 MEQ/ 50 ML, PUSH ONCE
     Route: 042
  47. VANCOMYCIN [Concomitant]
     Active Substance: VANCOMYCIN
     Dosage: 1250 MG + 250 ML NS, EVERY 12 HOURS (275 ML/HOUR)
     Route: 042
  48. PAROXETINE. [Concomitant]
     Active Substance: PAROXETINE
     Indication: PRODUCT USED FOR UNKNOWN INDICATION
     Route: 065
     Dates: end: 20170412
  49. DEXTROSE IN WATER [Concomitant]
     Active Substance: DEXTROSE\WATER
     Dosage: 1000 ML + 150 MEQ NACL (50 ML/ HOUR)
     Route: 042
  50. FENTANYL. [Concomitant]
     Active Substance: FENTANYL
     Dosage: 2,500 MCG IN 125 ML NS, UNKNOWN FREQ.
     Route: 042
  51. INSULIN REGULAR                    /01223201/ [Concomitant]
     Active Substance: INSULIN BEEF
     Indication: PRODUCT USED FOR UNKNOWN INDICATION
     Dosage: 2-10 UNITS, EVERY 6 HOURS
     Route: 058
  52. INSULIN REGULAR                    /01223201/ [Concomitant]
     Active Substance: INSULIN BEEF
     Dosage: 6-14 UNITS, EVERY 6 HOURS
     Route: 058
  53. LACTULOSE. [Concomitant]
     Active Substance: LACTULOSE
     Indication: CONSTIPATION
     Dosage: 20 GM/ 30 ML, TWICE DAILY AS NEEDED
     Route: 048
  54. MIDAZOLAM [Concomitant]
     Active Substance: MIDAZOLAM HYDROCHLORIDE
     Indication: ANXIETY
     Dosage: 1 MG / 1 ML PUSH EVERY 1 HOUR, AS NEEDED
     Route: 042
  55. VECURONIUM [Concomitant]
     Active Substance: VECURONIUM BROMIDE
     Dosage: 9 MG, PUSH ONCE
     Route: 042
  56. ACETAMINOPHEN. [Concomitant]
     Active Substance: ACETAMINOPHEN
     Indication: DISCOMFORT
  57. BISACODYL EG [Concomitant]
     Indication: CONSTIPATION
     Route: 065
  58. DEXTROSE IN WATER [Concomitant]
     Active Substance: DEXTROSE\WATER
     Indication: PRODUCT USED FOR UNKNOWN INDICATION
     Dosage: 1000 ML (75 ML/ HOUR)
     Route: 042
  59. VANCOMYCIN [Concomitant]
     Active Substance: VANCOMYCIN
     Indication: PRODUCT USED FOR UNKNOWN INDICATION
     Dosage: 1500 MG + 250 ML NS, EVERY 12 HOURS (186.67 ML/HOUR)
     Route: 042
  60. CLONAZEPAM. [Concomitant]
     Active Substance: CLONAZEPAM
     Indication: PRODUCT USED FOR UNKNOWN INDICATION
     Route: 065
     Dates: end: 20170412
  61. ALBUTEROL                          /00139501/ [Concomitant]
     Active Substance: ALBUTEROL
     Dosage: 2.5 MG/ 3 ML, EVERY 4 HOURS
     Route: 055
  62. AZITHROMYCIN ANHYDROUS. [Concomitant]
     Active Substance: AZITHROMYCIN ANHYDROUS
     Indication: PRODUCT USED FOR UNKNOWN INDICATION
     Dosage: 500 MG IN 250 ML NS (EVERY 24 HOURS 250 ML/HOUR)
     Route: 065
  63. FENTANYL. [Concomitant]
     Active Substance: FENTANYL
     Indication: DISCOMFORT
     Dosage: 100 MCG / 2 ML EVERY 1 HOUR, AS NEEDED
     Route: 042
  64. FUROSEMIDE. [Concomitant]
     Active Substance: FUROSEMIDE
     Dosage: 40 MG/ 4 ML, PUSH ONCE
     Route: 042
  65. MIDAZOLAM [Concomitant]
     Active Substance: MIDAZOLAM HYDROCHLORIDE
     Dosage: 3 MG / 3 ML PUSH EVERY 1 HOUR, AS NEEDED
     Route: 042

REACTIONS (1)
  - Brain injury [Fatal]

NARRATIVE: CASE EVENT DATE: 20170419
